FAERS Safety Report 6644715-3 (Version None)
Quarter: 2010Q1

REPORT INFORMATION
  Report Type: 
  Country: None (occurrence: None)
  Receive Date: 20100318
  Receipt Date: 20100318
  Transmission Date: 20100710
  Serious: Yes (Hospitalization)
  Sender: FDA-Public Use
  Company Number: None

PATIENT
  Age: 60 Year
  Sex: Male
  Weight: 64.8 kg

DRUGS (2)
  1. IMIPENEM AND CILASTATIN SODIUM [Suspect]
     Indication: UPPER RESPIRATORY TRACT INFECTION
     Dosage: 500 MG QID IV
     Route: 042
     Dates: start: 20091220, end: 20091226
  2. HEPARIN [Suspect]
     Dosage: 5000 UNITS TID SQ
     Route: 058
     Dates: start: 20091218, end: 20091221

REACTIONS (2)
  - PATHOGEN RESISTANCE [None]
  - THROMBOCYTOPENIA [None]
